FAERS Safety Report 5908925-2 (Version None)
Quarter: 2008Q4

REPORT INFORMATION
  Report Type: 
  Country: None (occurrence: None)
  Receive Date: 20081006
  Receipt Date: 20080930
  Transmission Date: 20090506
  Serious: Yes (Hospitalization, Other)
  Sender: FDA-Public Use
  Company Number: US-ELI_LILLY_AND_COMPANY-US200810000059

PATIENT
  Sex: Male

DRUGS (5)
  1. HUMALOG [Suspect]
     Route: 058
  2. LIPITOR [Concomitant]
     Indication: BLOOD CHOLESTEROL INCREASED
  3. FISH OIL [Concomitant]
  4. VITAMINS [Concomitant]
  5. PLAVIX [Concomitant]
     Indication: TRANSIENT ISCHAEMIC ATTACK

REACTIONS (5)
  - BIOPSY [None]
  - CENTRAL VENOUS CATHETER REMOVAL [None]
  - CENTRAL VENOUS CATHETERISATION [None]
  - CHEMOTHERAPY [None]
  - LYMPHOMA [None]
